FAERS Safety Report 25623050 (Version 1)
Quarter: 2025Q3

REPORT INFORMATION
  Report Type: Spontaneous
  Country: US (occurrence: US)
  Receive Date: 20250730
  Receipt Date: 20250730
  Transmission Date: 20251020
  Serious: No
  Sender: GALPHARM INTERNATIONAL
  Company Number: US-PERRIGO-25US008044

PATIENT
  Age: 79 Year
  Sex: Male
  Weight: 68.027 kg

DRUGS (1)
  1. LORATADINE [Suspect]
     Active Substance: LORATADINE
     Indication: Rhinorrhoea
     Route: 048
     Dates: start: 202309, end: 20250625

REACTIONS (2)
  - Therapeutic product effect decreased [Unknown]
  - Expired product administered [Unknown]

NARRATIVE: CASE EVENT DATE: 20240201
